FAERS Safety Report 4780315-8 (Version None)
Quarter: 2005Q3

REPORT INFORMATION
  Report Type: 
  Country: None (occurrence: None)
  Receive Date: 20050926
  Receipt Date: 20050906
  Transmission Date: 20060218
  Serious: Yes (Death, Hospitalization, Disabling)
  Sender: FDA-Public Use
  Company Number: 216499

PATIENT
  Age: 74 Year
  Sex: Female
  Weight: 73 kg

DRUGS (1)
  1. AVASTIN [Suspect]
     Indication: COLORECTAL CANCER METASTATIC
     Dosage: 385 MG, Q2W, INTRAVENOUS
     Route: 042
     Dates: start: 20041029, end: 20050715

REACTIONS (8)
  - DILATATION ATRIAL [None]
  - HALLUCINATION, VISUAL [None]
  - HYPERTENSIVE ENCEPHALOPATHY [None]
  - INTRACRANIAL PRESSURE INCREASED [None]
  - MENTAL STATUS CHANGES [None]
  - PULMONARY HYPERTENSION [None]
  - RENAL ARTERY STENOSIS [None]
  - VENTRICULAR HYPERTROPHY [None]
